FAERS Safety Report 4371664-6 (Version None)
Quarter: 2004Q2

REPORT INFORMATION
  Report Type: 
  Country: None (occurrence: None)
  Receive Date: 20040602
  Receipt Date: 20040602
  Transmission Date: 20050107
  Serious: Yes (Life-Threatening, Hospitalization, Other)
  Sender: FDA-Public Use
  Company Number: None

PATIENT
  Age: 1 Month
  Sex: Female
  Weight: 2.7216 kg

DRUGS (2)
  1. ZIDOVUDINE 50 MG/5 ML SYRUP [Suspect]
     Indication: HIV INFECTION
     Dosage: 0.6 CC EVERY 6 HR
     Dates: start: 20001124, end: 20001201
  2. RETROVIR [Suspect]
     Indication: HIV INFECTION
     Dosage: 0.6 CC EVERY 6 HR
     Dates: start: 20001124, end: 20001201

REACTIONS (1)
  - MEDICATION ERROR [None]
